FAERS Safety Report 16767208 (Version 1)
Quarter: 2019Q4

REPORT INFORMATION
  Report Type: Spontaneous
  Country: US (occurrence: US)
  Receive Date: 20190902
  Receipt Date: 20190902
  Transmission Date: 20200122
  Serious: Yes (Disabling, Other)
  Sender: FDA-Public Use
  Company Number: None

PATIENT
  Sex: Female
  Weight: 96.75 kg

DRUGS (9)
  1. VENFLAFAXINE ER CAP [Concomitant]
  2. MULTI-VITAMIN [Concomitant]
     Active Substance: .ALPHA.-TOCOPHEROL ACETATE, DL-\ASCORBIC ACID\CYANOCOBALAMIN\FLUORIDE ION\FOLIC ACID\NIACIN\PYRIDOXINE\RIBOFLAVIN\THIAMINE\VITAMIN A\VITAMIN D
  3. CLONAZEPAM. [Concomitant]
     Active Substance: CLONAZEPAM
  4. VITAMIN D [Concomitant]
     Active Substance: VITAMIN D NOS
  5. VALACYCLOVIR [Concomitant]
     Active Substance: VALACYCLOVIR HYDROCHLORIDE
  6. KLONOPIN [Suspect]
     Active Substance: CLONAZEPAM
     Indication: PANIC ATTACK
     Dosage: ?          QUANTITY:3 TABLET(S);?
     Route: 048
  7. METFORMIN ER CAP [Concomitant]
  8. FLONASE [Concomitant]
     Active Substance: FLUTICASONE PROPIONATE
  9. ALLERGY MEDICATION [Concomitant]
     Active Substance: DIPHENHYDRAMINE HYDROCHLORIDE

REACTIONS (54)
  - Paraesthesia [None]
  - Parosmia [None]
  - Metabolic disorder [None]
  - Dysmenorrhoea [None]
  - Muscle spasms [None]
  - Pruritus [None]
  - Fatigue [None]
  - Abnormal dreams [None]
  - Dysphagia [None]
  - Respiratory rate decreased [None]
  - Amenorrhoea [None]
  - Drug tolerance [None]
  - Hypothyroidism [None]
  - Incorrect product administration duration [None]
  - Weight increased [None]
  - Taste disorder [None]
  - Blepharospasm [None]
  - Respiratory rate increased [None]
  - Crying [None]
  - Endocrine disorder [None]
  - Anger [None]
  - Hypertension [None]
  - Agoraphobia [None]
  - Abdominal pain [None]
  - Irritability [None]
  - Insomnia [None]
  - Drug withdrawal syndrome [None]
  - Anxiety [None]
  - Diarrhoea [None]
  - Libido decreased [None]
  - Thirst [None]
  - Dry mouth [None]
  - Irritable bowel syndrome [None]
  - Aggression [None]
  - Memory impairment [None]
  - Speech disorder [None]
  - Hot flush [None]
  - Urine odour abnormal [None]
  - Dyspnoea [None]
  - Suicidal ideation [None]
  - Fibromyalgia [None]
  - Appetite disorder [None]
  - Headache [None]
  - Cognitive disorder [None]
  - Dizziness [None]
  - Bipolar disorder [None]
  - Panic attack [None]
  - Formication [None]
  - Disturbance in attention [None]
  - Hirsutism [None]
  - Hyperacusis [None]
  - Hyperaesthesia [None]
  - Dry eye [None]
  - Migraine [None]
